FAERS Safety Report 9346594 (Version 1)
Quarter: 2013Q2

REPORT INFORMATION
  Report Type: Other
  Country: GB (occurrence: GB)
  Receive Date: 20130613
  Receipt Date: 20130613
  Transmission Date: 20140414
  Serious: Yes (Hospitalization)
  Sender: FDA-Public Use
  Company Number: GB-ACTAVIS-2013-10303

PATIENT
  Sex: Female

DRUGS (5)
  1. OXYCODONE (UNKNOWN) [Suspect]
     Indication: PAIN
     Dosage: UNK
     Route: 048
  2. LAXIDO [Suspect]
     Indication: PRODUCT USED FOR UNKNOWN INDICATION
     Dosage: UNK
     Route: 065
  3. WARFARIN [Concomitant]
     Indication: PRODUCT USED FOR UNKNOWN INDICATION
     Dosage: UNK
     Route: 065
  4. ADCAL                              /00056901/ [Concomitant]
     Indication: PRODUCT USED FOR UNKNOWN INDICATION
     Dosage: UNK
     Route: 065
  5. FERROUS SULPHATE                   /00023503/ [Concomitant]
     Indication: PRODUCT USED FOR UNKNOWN INDICATION
     Dosage: UNK
     Route: 065

REACTIONS (3)
  - Renal tubular acidosis [Unknown]
  - Hyperkalaemia [Unknown]
  - Hyponatraemia [Unknown]
